FAERS Safety Report 7099289-2 (Version None)
Quarter: 2010Q4

REPORT INFORMATION
  Report Type: 
  Country: None (occurrence: None)
  Receive Date: 20101105
  Receipt Date: 20101021
  Transmission Date: 20110411
  Serious: Yes (Death, Other)
  Sender: FDA-Public Use
  Company Number: 2010004609

PATIENT
  Age: 77 Year
  Sex: Female

DRUGS (1)
  1. TARCEVA [Suspect]
     Indication: LUNG NEOPLASM MALIGNANT
     Dosage: ORAL
     Route: 048
     Dates: start: 20080101, end: 20101001

REACTIONS (9)
  - CLAVICLE FRACTURE [None]
  - EXFOLIATIVE RASH [None]
  - GASTROOESOPHAGEAL REFLUX DISEASE [None]
  - MALIGNANT NEOPLASM PROGRESSION [None]
  - METASTASES TO BONE [None]
  - METASTASES TO LIVER [None]
  - ONYCHOMADESIS [None]
  - PARONYCHIA [None]
  - RASH PUSTULAR [None]
